FAERS Safety Report 4846197-0 (Version None)
Quarter: 2005Q4

REPORT INFORMATION
  Report Type: 
  Country: None (occurrence: None)
  Receive Date: 20051206
  Receipt Date: 20051006
  Transmission Date: 20060501
  Serious: Yes (Hospitalization, Disabling)
  Sender: FDA-Public Use
  Company Number: US-MERCK-0510USA05517

PATIENT
  Age: 36 Year
  Sex: Male
  Weight: 81 kg

DRUGS (2)
  1. VIOXX [Suspect]
     Indication: PAIN
     Route: 048
     Dates: start: 20000801, end: 20020101
  2. VIOXX [Suspect]
     Route: 048
     Dates: start: 20000801, end: 20020101

REACTIONS (10)
  - ARRHYTHMIA [None]
  - BLOOD CREATINE PHOSPHOKINASE MB INCREASED [None]
  - CEREBROVASCULAR ACCIDENT [None]
  - CHEST PAIN [None]
  - HYPERTENSION [None]
  - ISCHAEMIC STROKE [None]
  - PALPITATIONS [None]
  - SCAN MYOCARDIAL PERFUSION ABNORMAL [None]
  - TRANSIENT ISCHAEMIC ATTACK [None]
  - VERTEBROBASILAR INSUFFICIENCY [None]
